FAERS Safety Report 6530418-2 (Version None)
Quarter: 2010Q1

REPORT INFORMATION
  Report Type: 
  Country: None (occurrence: None)
  Receive Date: 20100106
  Receipt Date: 20100106
  Transmission Date: 20100710
  Serious: Yes (Other)
  Sender: FDA-Public Use
  Company Number: None

PATIENT
  Sex: Male
  Weight: 95.2554 kg

DRUGS (3)
  1. ZICAM COLD REMEDY GEL SWABS GEL SWABS [Suspect]
     Indication: INFLUENZA
     Dosage: 1 TUBE EVERY 4 HOURS NASAL  3 TO 5 DAYS
     Route: 045
  2. ZICAM COLD REMEDY GEL SWABS GEL SWABS [Suspect]
     Indication: NASOPHARYNGITIS
     Dosage: 1 TUBE EVERY 4 HOURS NASAL  3 TO 5 DAYS
     Route: 045
  3. ZICAM EXTREME CONGESTION RELIEF NASAL SPRAY [Suspect]
     Indication: NASOPHARYNGITIS
     Dosage: 3 PUMPS EACH NOSTRIL EVERY 12 HOURS NASAL (3 TO 5 DAYS)
     Route: 045

REACTIONS (1)
  - COUGH [None]
